FAERS Safety Report 10135578 (Version 2)
Quarter: 2014Q3

REPORT INFORMATION
  Report Type: Spontaneous
  Country: GB (occurrence: GB)
  Receive Date: 20140428
  Receipt Date: 20140730
  Transmission Date: 20150326
  Serious: Yes (Hospitalization, Other)
  Sender: FDA-Public Use
  Company Number: PHFR2014GB003042

PATIENT
  Age: 47 Year
  Sex: Female

DRUGS (6)
  1. CLOZARIL [Suspect]
     Active Substance: CLOZAPINE
     Dosage: 250 MG, UNK
  2. CLOZARIL [Suspect]
     Active Substance: CLOZAPINE
     Dosage: UNK UKN, UNK
     Route: 048
     Dates: start: 20130819
  3. SODIUM VALPROATE [Concomitant]
     Active Substance: VALPROATE SODIUM
     Indication: MOOD ALTERED
     Dosage: 300 MG, QD
     Route: 048
     Dates: start: 20131223
  4. HYOSCINE [Concomitant]
     Active Substance: SCOPOLAMINE
     Indication: SALIVARY HYPERSECRETION
     Dosage: 300 MG, QD
     Route: 048
     Dates: start: 20140707
  5. CLOZARIL [Suspect]
     Active Substance: CLOZAPINE
     Dosage: 250 MG, BID
     Route: 048
     Dates: start: 20131223, end: 20140421
  6. LORAZEPAM. [Concomitant]
     Active Substance: LORAZEPAM
     Dosage: 1 MG, QD PRM
     Route: 048

REACTIONS (6)
  - C-reactive protein increased [Not Recovered/Not Resolved]
  - Blood sodium decreased [Unknown]
  - Haemoglobin decreased [Not Recovered/Not Resolved]
  - Pyelonephritis [Recovered/Resolved]
  - Sepsis [Unknown]
  - Thrombocytopenia [Recovered/Resolved]

NARRATIVE: CASE EVENT DATE: 20140421
